FAERS Safety Report 4326894-6 (Version None)
Quarter: 2004Q1

REPORT INFORMATION
  Report Type: 
  Country: None (occurrence: None)
  Receive Date: 20040330
  Receipt Date: 20040323
  Transmission Date: 20041129
  Serious: Yes (Disabling)
  Sender: FDA-Public Use
  Company Number: US-MERCK-0403USA02073

PATIENT
  Sex: Male

DRUGS (3)
  1. TOPROL-XL [Concomitant]
     Route: 048
  2. ZOCOR [Suspect]
     Indication: HYPERCHOLESTEROLAEMIA
     Route: 048
     Dates: start: 20020101, end: 20040201
  3. DIOVAN [Concomitant]
     Route: 065

REACTIONS (3)
  - AMNESIA [None]
  - HEPATIC ENZYME INCREASED [None]
  - IMPAIRED WORK ABILITY [None]
